FAERS Safety Report 19841790 (Version 1)
Quarter: 2021Q3

REPORT INFORMATION
  Report Type: Spontaneous
  Country: GB (occurrence: GB)
  Receive Date: 20210915
  Receipt Date: 20210915
  Transmission Date: 20211014
  Serious: Yes (Other)
  Sender: FDA-Public Use
  Company Number: GB-009507513-2109GBR002881

PATIENT
  Age: 71 Year
  Sex: Female
  Weight: 54.3 kg

DRUGS (3)
  1. PEMBROLIZUMAB. [Suspect]
     Active Substance: PEMBROLIZUMAB
     Indication: COLON CANCER
     Dosage: 200 MILLIGRAM
     Route: 042
     Dates: start: 20210908, end: 20210908
  2. ALENDRONIC ACID [Concomitant]
     Active Substance: ALENDRONIC ACID
     Indication: ILL-DEFINED DISORDER
  3. EVACAL D3 [Concomitant]
     Indication: ILL-DEFINED DISORDER
     Dosage: CHEWABLE

REACTIONS (2)
  - Chills [Recovered/Resolved]
  - Extravasation [Recovered/Resolved]

NARRATIVE: CASE EVENT DATE: 20210908
